FAERS Safety Report 7056340-3 (Version None)
Quarter: 2010Q4

REPORT INFORMATION
  Report Type: 
  Country: None (occurrence: None)
  Receive Date: 20101021
  Receipt Date: 20101012
  Transmission Date: 20110411
  Serious: Yes (Other)
  Sender: FDA-Public Use
  Company Number: US-AMGEN INC.-QUU415139

PATIENT

DRUGS (54)
  1. EPOGEN [Suspect]
     Indication: DIALYSIS
     Dosage: 28600 IU, 3 TIMES/WK
     Route: 042
     Dates: start: 20000101
  2. HYDRALAZINE [Concomitant]
     Dosage: 50 MG, QID
  3. ALLOPURINOL [Concomitant]
     Dosage: 100 MG, UNK
     Dates: start: 20080624
  4. ALPRAZOLAM [Concomitant]
     Dosage: UNK UNK, PRN
     Dates: start: 20100613
  5. ZOLPIDEM TARTRATE [Concomitant]
     Dosage: UNK UNK, UNK
     Route: 048
     Dates: start: 20070423
  6. WARFARIN SODIUM [Concomitant]
     Dosage: UNK UNK, QD
     Dates: start: 20100618
  7. PROPRANOLOL HYDROCHLORIDE [Concomitant]
     Dosage: UNK UNK, UNK
     Dates: start: 20100127
  8. ESOMEPRAZOLE MAGNESIUM [Concomitant]
     Dosage: 40 MG, QD
     Dates: start: 20050720
  9. AMLODIPINE BESYLATE [Concomitant]
     Dosage: 5 MG, QD
     Route: 048
     Dates: start: 20100127
  10. PHOSLO [Concomitant]
     Dosage: UNK UNK, UNK
     Dates: start: 20080624
  11. CLOPIDOGREL BISULFATE [Concomitant]
     Dosage: 75 MG, QD
     Dates: start: 20100618
  12. CALCITRIOL [Concomitant]
     Dosage: UNK UNK, UNK
     Dates: start: 20060309
  13. SODIUM BICARBONATE [Concomitant]
     Dosage: UNK UNK, UNK
     Dates: start: 20080130
  14. INFLUENZA VACCINE [Concomitant]
     Dosage: .5 ML, UNK
     Route: 030
  15. FEXOFENADINE HCL [Concomitant]
     Dosage: UNK UNK, UNK
     Route: 048
     Dates: start: 20060105, end: 20060524
  16. NARATRIPTAN [Concomitant]
     Dosage: 10 MG, PRN
     Dates: start: 20090324, end: 20090327
  17. ACETYLSALICYLIC ACID SRT [Concomitant]
     Dosage: 81 MG, QD
     Dates: start: 20040820, end: 20100702
  18. CALCIUM [Concomitant]
     Dosage: 1000 MG, BID
     Dates: start: 20061002, end: 20061106
  19. MYCOPHENOLATE MOFETIL [Concomitant]
     Dosage: UNK UNK, UNK
     Dates: start: 20051220, end: 20060331
  20. LORATADINE [Concomitant]
     Dosage: 10 MG, QD
     Dates: start: 20060511, end: 20060920
  21. FLUCONAZOLE [Concomitant]
     Dosage: 200 MG, QD
     Dates: start: 20060622, end: 20060920
  22. HYDROMORPHONE HYDROCHLORIDE [Concomitant]
     Dosage: UNK UNK, UNK
     Route: 048
     Dates: start: 20100111, end: 20100205
  23. ENALAPRIL MALEATE [Concomitant]
     Dosage: 10 MG, BID
     Dates: start: 20081112, end: 20100127
  24. FIORINAL [Concomitant]
     Dosage: UNK UNK, PRN
     Dates: start: 20020520, end: 20040820
  25. CYCLOBENZAPRINE HCL [Concomitant]
     Dosage: 10 MG, UNK
     Dates: start: 20050607, end: 20060524
  26. FLUTICASONE PROPIONATE [Concomitant]
     Dosage: UNK UNK, UNK
     Dates: start: 20060105, end: 20080310
  27. FLUTICASONE PROPIONATE [Concomitant]
     Dosage: UNK UNK, UNK
     Dates: start: 20020606, end: 20040820
  28. VENOFER [Concomitant]
  29. HEPARIN [Concomitant]
  30. ESCITALOPRAM [Concomitant]
     Dosage: 10 MG, QD
     Dates: start: 20060105, end: 20060920
  31. ACETAMINOPHEN AND HYDROCODONE BITARTRATE [Concomitant]
     Dosage: UNK UNK, UNK
     Dates: start: 20100618, end: 20100702
  32. PREGABALIN [Concomitant]
     Dosage: 50 MG, UNK
     Dates: start: 20100430, end: 20100702
  33. NITROFURANTOIN (MONOHYDRATE/MACROCRYSTALS) [Concomitant]
     Dosage: 100 MG, QD
     Dates: start: 20040820, end: 20061026
  34. MAGNESIUM OXIDE [Concomitant]
     Dosage: UNK UNK, UNK
     Dates: start: 20061026, end: 20080130
  35. RIZATRIPTAN BENZOATE [Concomitant]
     Dosage: UNK UNK, PRN
     Dates: start: 20080624, end: 20081112
  36. GABAPENTIN [Concomitant]
     Dosage: UNK UNK, UNK
     Dates: start: 20100205, end: 20100430
  37. PATANOL [Concomitant]
     Dosage: UNK UNK, BID
     Dates: start: 20091110, end: 20100702
  38. POTASSIUM CHLORIDE [Concomitant]
     Dosage: 10 MEQ, QD
     Dates: start: 20050630, end: 20080130
  39. PREDNISONE [Concomitant]
     Dosage: UNK UNK, QD
     Dates: start: 20060202, end: 20060331
  40. OMEPRAZOLE [Concomitant]
     Dosage: UNK UNK, QD
     Dates: start: 20050805, end: 20061106
  41. TACROLIMUS [Concomitant]
     Dosage: UNK UNK, BID
     Dates: start: 20040820, end: 20080130
  42. RAPAMUNE [Concomitant]
     Dosage: UNK UNK, QD
     Dates: start: 20060418, end: 20080130
  43. METOCLOPRAMIDE [Concomitant]
     Dosage: UNK UNK, UNK
     Dates: start: 20060202, end: 20080130
  44. RENAGEL [Concomitant]
     Dosage: UNK UNK, UNK
     Dates: start: 20080130, end: 20080625
  45. SEVELAMER [Concomitant]
     Dosage: UNK UNK, UNK
     Dates: start: 20090324, end: 20100702
  46. ZALEPLON [Concomitant]
     Dosage: 10 MG, PRN
     Dates: start: 20090327, end: 20100127
  47. TOPIRAMATE [Concomitant]
     Dosage: UNK UNK, QD
     Dates: start: 20090324, end: 20100702
  48. TRAZODONE [Concomitant]
     Dosage: UNK UNK, UNK
     Dates: start: 20091204, end: 20100712
  49. FENOFIBRATE [Concomitant]
     Dosage: UNK UNK, QD
     Dates: start: 20040820, end: 20090403
  50. FENOFIBRIC ACID [Concomitant]
     Dosage: 135 MG, QD
     Route: 048
     Dates: start: 20090403, end: 20100702
  51. TUMS [Concomitant]
     Dosage: 1500 MG, TID
     Dates: start: 20061106, end: 20080130
  52. ACETAMINOPHEN AND HYDROCODONE BITARTRATE [Concomitant]
     Dosage: UNK UNK, PRN
     Dates: start: 20050916, end: 20060622
  53. TOCOPHEROL CONCENTRATE CAP [Concomitant]
     Dosage: 400 IU, QD
     Dates: start: 20090324, end: 20100702
  54. ZOLMITRIPTAN [Concomitant]
     Dosage: 10 MG, PRN
     Dates: start: 20080130, end: 20080310

REACTIONS (7)
  - ANAEMIA [None]
  - COMPLICATIONS OF TRANSPLANTED KIDNEY [None]
  - CONFUSIONAL STATE [None]
  - DYSPNOEA [None]
  - PROCEDURAL PAIN [None]
  - PULMONARY CONGESTION [None]
  - THERAPEUTIC RESPONSE DECREASED [None]
